FAERS Safety Report 7954789-5 (Version None)
Quarter: 2011Q4

REPORT INFORMATION
  Report Type: 
  Country: None (occurrence: None)
  Receive Date: 20111202
  Receipt Date: 20111118
  Transmission Date: 20120403
  Serious: Yes (Other)
  Sender: FDA-Public Use
  Company Number: US-ROCHE-1014657

PATIENT

DRUGS (1)
  1. VEMURAFENIB [Suspect]
     Indication: METASTATIC MALIGNANT MELANOMA
     Dosage: DOSE: 960

REACTIONS (4)
  - FATIGUE [None]
  - ABDOMINAL DISCOMFORT [None]
  - RASH [None]
  - METASTASES TO CENTRAL NERVOUS SYSTEM [None]
